FAERS Safety Report 8365982-4 (Version None)
Quarter: 2012Q2

REPORT INFORMATION
  Report Type: 
  Country: None (occurrence: None)
  Receive Date: 20120517
  Receipt Date: 20120508
  Transmission Date: 20120825
  Serious: Yes (Other)
  Sender: FDA-Public Use
  Company Number: NL-ABBOTT-12P-114-0934027-00

PATIENT
  Sex: Female

DRUGS (1)
  1. HUMIRA [Suspect]
     Indication: PSORIASIS
     Route: 058

REACTIONS (12)
  - COUGH [None]
  - FATIGUE [None]
  - SYSTEMIC LUPUS ERYTHEMATOSUS [None]
  - CHEST DISCOMFORT [None]
  - ARTHROPATHY [None]
  - HYPOAESTHESIA [None]
  - PYREXIA [None]
  - HYPOAESTHESIA ORAL [None]
  - URINARY TRACT INFECTION [None]
  - DRUG INEFFECTIVE [None]
  - TUBERCULOSIS [None]
  - RASH [None]
